FAERS Safety Report 7357820-3 (Version None)
Quarter: 2011Q1

REPORT INFORMATION
  Report Type: 
  Country: None (occurrence: None)
  Receive Date: 20110317
  Receipt Date: 20110308
  Transmission Date: 20110831
  Serious: Yes (Hospitalization)
  Sender: FDA-Public Use
  Company Number: US-BAXTER-2010BH030573

PATIENT
  Age: 15 Month
  Sex: Male
  Weight: 10 kg

DRUGS (7)
  1. FEIBA [Suspect]
     Indication: HAEMORRHAGE PROPHYLAXIS
     Route: 042
     Dates: start: 20101217, end: 20101217
  2. AMICAR [Concomitant]
     Indication: MUCOSAL HAEMORRHAGE
     Route: 048
     Dates: start: 20100526
  3. ADVATE [Concomitant]
     Route: 042
     Dates: start: 20100301, end: 20100101
  4. FEIBA [Suspect]
     Indication: FACTOR VIII DEFICIENCY
     Route: 042
     Dates: start: 20101217, end: 20101217
  5. LIDOCAINE [Concomitant]
     Route: 061
     Dates: start: 20101207
  6. FEIBA [Suspect]
     Route: 042
     Dates: start: 20101130
  7. FEIBA [Suspect]
     Route: 042
     Dates: start: 20101130

REACTIONS (5)
  - CATHETER SITE HAEMATOMA [None]
  - CATHETER SITE HAEMORRHAGE [None]
  - INFUSION SITE SWELLING [None]
  - SCREAMING [None]
  - FACTOR VIII INHIBITION [None]
